FAERS Safety Report 25348376 (Version 1)
Quarter: 2025Q2

REPORT INFORMATION
  Report Type: Spontaneous
  Country: US (occurrence: None)
  Receive Date: 20250522
  Receipt Date: 20250522
  Transmission Date: 20250716
  Serious: Yes (Disabling)
  Sender: FDA-CTU
  Company Number: None

PATIENT
  Age: 44 Year
  Sex: Male
  Weight: 58.5 kg

DRUGS (2)
  1. OFLOXACIN OPHTHALMIC [Suspect]
     Active Substance: OFLOXACIN
     Indication: Conjunctivitis bacterial
     Dosage: OTHER QUANTITY : 4 DROP(S);?FREQUENCY : EVERY 4 HOURS;?
     Route: 047
     Dates: start: 20241210, end: 20241217
  2. GABAPENTIN [Concomitant]
     Active Substance: GABAPENTIN

REACTIONS (5)
  - Tendon disorder [None]
  - Connective tissue disorder [None]
  - Tendon injury [None]
  - Muscle injury [None]
  - Exercise tolerance decreased [None]

NARRATIVE: CASE EVENT DATE: 20250120
